FAERS Safety Report 10975990 (Version 1)
Quarter: 2015Q2

REPORT INFORMATION
  Report Type: Report from Study
  Country: US (occurrence: US)
  Receive Date: 20150401
  Receipt Date: 20150401
  Transmission Date: 20150821
  Serious: Yes (Hospitalization)
  Sender: FDA-Public Use
  Company Number: US-MYLANLABS-2015M1009389

PATIENT
  Age: 53 Year
  Sex: Female

DRUGS (5)
  1. ZOLOFT [Concomitant]
     Active Substance: SERTRALINE HYDROCHLORIDE
     Dosage: 200 MG, QD
  2. TOPAMAX [Concomitant]
     Active Substance: TOPIRAMATE
     Dosage: UNK
  3. AMNESTEEM [Suspect]
     Active Substance: ISOTRETINOIN
     Indication: ACNE
     Dosage: 40 MG, BID
     Route: 048
     Dates: start: 20141006, end: 201412
  4. AMNESTEEM [Suspect]
     Active Substance: ISOTRETINOIN
     Dosage: 40 MG, QD
     Route: 048
     Dates: start: 2015
  5. ZOCOR [Concomitant]
     Active Substance: SIMVASTATIN
     Dosage: UNK

REACTIONS (2)
  - Pain [Recovered/Resolved]
  - Swelling face [Recovered/Resolved]

NARRATIVE: CASE EVENT DATE: 201412
